FAERS Safety Report 8457101-0 (Version None)
Quarter: 2012Q2

REPORT INFORMATION
  Report Type: 
  Country: None (occurrence: None)
  Receive Date: 20120621
  Receipt Date: 20120608
  Transmission Date: 20120825
  Serious: Yes (Other)
  Sender: FDA-Public Use
  Company Number: US-MYLANLABS-2012S1012086

PATIENT
  Age: 10 Year
  Sex: Female

DRUGS (17)
  1. CYCLOPHOSPHAMIDE [Suspect]
     Indication: BURKITT'S LYMPHOMA STAGE III
     Dosage: 300 MG/M2 AS PART OF COP
     Route: 065
  2. METHOTREXATE [Suspect]
     Dosage: AS PART OF COPADM1
     Route: 065
  3. VINCRISTINE [Suspect]
     Dosage: AS PART OF COPADM2
     Route: 065
  4. CYTARABINE [Suspect]
     Indication: BURKITT'S LYMPHOMA STAGE III
     Dosage: CONTINUOUS INFUSION OF 100 MG/M2 DAILY FOR 5 DAYS
     Route: 041
  5. VINCRISTINE [Suspect]
     Indication: BURKITT'S LYMPHOMA STAGE III
     Dosage: AS PART OF COP
     Route: 065
  6. METHOTREXATE [Suspect]
     Dosage: AS PART OF COPADM2 AND CYM1
     Route: 065
  7. HYDROCORTISONE [Suspect]
     Dosage: ADMINISTERED ONCE WITH CYTARABINE AS PART OF CYM1
     Route: 065
  8. DOXORUBICIN HCL [Suspect]
     Indication: BURKITT'S LYMPHOMA STAGE III
     Dosage: AS PART OF COPADM1
     Route: 065
  9. CYTARABINE [Suspect]
     Dosage: ADMINISTERED ONCE WITH HYDROCORTISONE AS PART OF CYM1
     Route: 065
  10. RITUXIMAB [Suspect]
     Indication: BURKITT'S LYMPHOMA STAGE III
     Dosage: FIVE TOTAL DOSES; CUMULATIVE DOSE OF 1875 MG/M2
     Route: 065
  11. DOXORUBICIN HCL [Suspect]
     Dosage: AS PART OF COPADM2
     Route: 065
  12. PREDNISOLONE [Suspect]
     Dosage: 60 MG/M2/DAY FOR 5 DAYS, THEN TAPERED OVER 3 DAYS AS PART OF COPADM1 AND COPADM2
     Route: 065
  13. METHOTREXATE [Suspect]
     Indication: BURKITT'S LYMPHOMA STAGE III
     Dosage: ADMINISTERED WITH HYDROCORTISONE
     Route: 037
  14. HYDROCORTISONE [Suspect]
     Indication: BURKITT'S LYMPHOMA STAGE III
     Dosage: ADMINISTERED WITH METHOTREXATE
     Route: 037
  15. CYCLOPHOSPHAMIDE [Suspect]
     Dosage: SIX DOSES AS PART OF COPADM1 AND SIX DOSES AS PART OF DOSE-REDUCED COPADM2
     Route: 065
  16. VINCRISTINE [Suspect]
     Dosage: AS PART OF COPADM1
     Route: 065
  17. PREDNISOLONE [Suspect]
     Indication: BURKITT'S LYMPHOMA STAGE III
     Dosage: 60 MG/M2/DAY FOR 7 DAYS AS PART OF COP
     Route: 065

REACTIONS (6)
  - RENAL FAILURE [None]
  - SMALL INTESTINAL OBSTRUCTION [None]
  - SEPSIS [None]
  - ABDOMINAL COMPARTMENT SYNDROME [None]
  - FEBRILE NEUTROPENIA [None]
  - HYPERTENSION [None]
